FAERS Safety Report 8936342 (Version 2)
Quarter: 2013Q1

REPORT INFORMATION
  Report Type: Spontaneous
  Country: US (occurrence: US)
  Receive Date: 20121130
  Receipt Date: 20130313
  Transmission Date: 20140127
  Serious: No
  Sender: FDA-Public Use
  Company Number: US-BAYER-2012-125636

PATIENT
  Age: 55 Year
  Sex: Male
  Weight: 88.44 kg

DRUGS (2)
  1. MAGNEVIST [Suspect]
     Indication: NUCLEAR MAGNETIC RESONANCE IMAGING BRAIN
     Dosage: 18 ML, ONCE
     Route: 042
  2. MAGNEVIST [Suspect]
     Indication: MIGRAINE

REACTIONS (3)
  - Paraesthesia [Not Recovered/Not Resolved]
  - Paraesthesia [Not Recovered/Not Resolved]
  - Drug screen positive [Not Recovered/Not Resolved]
